FAERS Safety Report 4993975-3 (Version None)
Quarter: 2006Q2

REPORT INFORMATION
  Report Type: 
  Country: None (occurrence: None)
  Receive Date: 20060505
  Receipt Date: 20060503
  Transmission Date: 20061013
  Serious: Yes (Hospitalization)
  Sender: FDA-Public Use
  Company Number: FR-GLAXOSMITHKLINE-B0422126A

PATIENT
  Age: 3 Year
  Sex: Male

DRUGS (1)
  1. CLAMOXYL [Suspect]
     Route: 048
     Dates: start: 20041224, end: 20041227

REACTIONS (13)
  - ARTHRALGIA [None]
  - BLOOD PRESSURE IMMEASURABLE [None]
  - CAPILLARY DISORDER [None]
  - HAEMATURIA [None]
  - HAEMODYNAMIC INSTABILITY [None]
  - HYPOCALCAEMIA [None]
  - HYPOVOLAEMIA [None]
  - PETECHIAE [None]
  - PROTEINURIA [None]
  - PURPURA [None]
  - PYREXIA [None]
  - SERUM SICKNESS [None]
  - TACHYCARDIA [None]
